FAERS Safety Report 23961795 (Version 1)
Quarter: 2024Q2

REPORT INFORMATION
  Report Type: Report from Study
  Country: EG (occurrence: EG)
  Receive Date: 20240611
  Receipt Date: 20240611
  Transmission Date: 20240716
  Serious: Yes (Other)
  Sender: FDA-Public Use
  Company Number: EG-002147023-NVSC2020EG221418

PATIENT
  Sex: Male
  Weight: 23 kg

DRUGS (5)
  1. OMNITROPE [Suspect]
     Active Substance: SOMATROPIN
     Indication: Growth hormone deficiency
     Dosage: 0.5 MG, QD
     Route: 058
     Dates: start: 20200721
  2. OMNITROPE [Suspect]
     Active Substance: SOMATROPIN
     Dosage: 0.5 MG, QD, SOLUTION IN CARTRIDGE
     Route: 058
     Dates: start: 202012, end: 202201
  3. Ferroglobin [Concomitant]
     Indication: Product used for unknown indication
     Dosage: UNK UNK, UNKNOWN (5CM/DAY)
     Route: 065
     Dates: start: 20200721
  4. OSTEOCARE [Concomitant]
     Active Substance: CALCIUM\CHOLECALCIFEROL\MAGNESIUM\ZINC
     Indication: Mineral supplementation
     Dosage: 5 CM ONCE PER DAY (THE REPORTER STATED THAT THE PATIENT TAKES IT CONTENTIOUS FOR 3 MONTHS AND THEN S
     Route: 048
     Dates: start: 2020
  5. ZINC [Concomitant]
     Active Substance: PYRITHIONE ZINC\ZINC\ZINC CHLORIDE
     Indication: Product used for unknown indication
     Dosage: UNK UNK, UNKNOWN
     Route: 065
     Dates: start: 20200721

REACTIONS (4)
  - Chromaturia [Not Recovered/Not Resolved]
  - Growth retardation [Not Recovered/Not Resolved]
  - Limb deformity [Not Recovered/Not Resolved]
  - Eating disorder [Recovered/Resolved]

NARRATIVE: CASE EVENT DATE: 20200101
